FAERS Safety Report 6148422-5 (Version None)
Quarter: 2009Q2

REPORT INFORMATION
  Report Type: 
  Country: None (occurrence: None)
  Receive Date: 20090408
  Receipt Date: 20090327
  Transmission Date: 20091009
  Serious: Yes (Life-Threatening, Hospitalization, Other)
  Sender: FDA-Public Use
  Company Number: JP-PFIZER INC-2009191095

PATIENT

DRUGS (10)
  1. CHAMPIX [Suspect]
     Indication: NICOTINE DEPENDENCE
     Dosage: 0.5 MG, 1X/DAY
     Route: 048
     Dates: start: 20090113, end: 20090115
  2. CHAMPIX [Suspect]
     Dosage: 1 MG, 2X/DAY
     Route: 048
     Dates: start: 20090116, end: 20090119
  3. CHAMPIX [Suspect]
     Dosage: 2 MG, 2X/DAY
     Route: 048
     Dates: start: 20090120, end: 20090211
  4. PAXIL [Suspect]
     Indication: DEPRESSION
     Dosage: 20 MG, 1X/DAY
     Route: 048
  5. PAXIL [Suspect]
     Dosage: 10 MG, 1X/DAY
     Route: 048
     Dates: start: 20090209
  6. ZETIA [Concomitant]
     Indication: HYPERLIPIDAEMIA
     Dosage: UNK
     Route: 048
  7. BENZALIN [Concomitant]
     Indication: INSOMNIA
     Dosage: UNK
     Route: 048
  8. LAC B [Concomitant]
     Indication: DIARRHOEA
     Dosage: UNK
     Dates: start: 20090204
  9. NAUZELIN [Concomitant]
     Indication: ABDOMINAL PAIN
     Dosage: UNK
     Dates: start: 20090204
  10. GASTER [Concomitant]
     Indication: ABDOMINAL PAIN
     Dosage: UNK
     Dates: start: 20090204

REACTIONS (4)
  - ABDOMINAL PAIN [None]
  - DIARRHOEA [None]
  - SPINAL FRACTURE [None]
  - SUICIDE ATTEMPT [None]
